FAERS Safety Report 6086893-3 (Version None)
Quarter: 2009Q1

REPORT INFORMATION
  Report Type: 
  Country: None (occurrence: None)
  Receive Date: 20090223
  Receipt Date: 20090216
  Transmission Date: 20090719
  Serious: Yes (Other)
  Sender: FDA-Public Use
  Company Number: US-ASTRAZENECA-2009UW04472

PATIENT
  Age: 74 Year
  Sex: Female

DRUGS (4)
  1. NEXIUM [Suspect]
     Route: 048
  2. TOPROL-XL [Suspect]
     Route: 048
  3. DILANTIN [Concomitant]
     Indication: CONVULSION
  4. PHENOBARBITAL [Concomitant]
     Indication: CONVULSION

REACTIONS (2)
  - CONVULSION [None]
  - HAEMATOMA [None]
